FAERS Safety Report 22251965 (Version 1)
Quarter: 2023Q2

REPORT INFORMATION
  Report Type: Report from Study
  Country: US (occurrence: US)
  Receive Date: 20230425
  Receipt Date: 20230425
  Transmission Date: 20230722
  Serious: No
  Sender: FDA-Public Use
  Company Number: US-INCYTE CORPORATION-2023IN002881

PATIENT

DRUGS (2)
  1. JAKAFI [Suspect]
     Active Substance: RUXOLITINIB
     Indication: Chronic graft versus host disease
     Dosage: 5 MILLIGRAM, BID, 5 MG OF JAKAFI IN THE MORNING AND 5 MG OF JAKAFI IN THE EVENING
     Route: 065
  2. JAKAFI [Suspect]
     Active Substance: RUXOLITINIB
     Dosage: TAKES 10 MG OF JAKAFI IN THE MORNING AND TAKES ONE-HALF OF A 10 MG TABLET OF JAKAFI IN THE EVENINGS
     Route: 065

REACTIONS (1)
  - Wrong technique in product usage process [Unknown]
